FAERS Safety Report 5419181-6 (Version None)
Quarter: 2007Q3

REPORT INFORMATION
  Report Type: 
  Country: None (occurrence: None)
  Receive Date: 20070815
  Receipt Date: 20070815
  Transmission Date: 20080115
  Serious: No
  Sender: FDA-Public Use
  Company Number: None

PATIENT
  Age: 40 Year
  Sex: Female
  Weight: 58.9676 kg

DRUGS (1)
  1. ONE A DAY WOMEN'S 250 TABLETS BAYER [Suspect]
     Indication: VITAMIN SUPPLEMENTATION
     Dosage: ONE DAILY PO
     Route: 048

REACTIONS (2)
  - FEELING ABNORMAL [None]
  - HEAD DISCOMFORT [None]
